FAERS Safety Report 4336433-1 (Version None)
Quarter: 2004Q2

REPORT INFORMATION
  Report Type: 
  Country: None (occurrence: None)
  Receive Date: 20040407
  Receipt Date: 20040322
  Transmission Date: 20050107
  Serious: Yes (Other)
  Sender: FDA-Public Use
  Company Number: DSA_80603_2004

PATIENT
  Age: 42 Year
  Sex: Female

DRUGS (7)
  1. XYREM [Suspect]
     Indication: FIBROMYALGIA
     Dosage: 2.25 G TWICE NIGHTLY PO
     Route: 048
     Dates: start: 20040301
  2. XYREM [Suspect]
     Indication: INSOMNIA
     Dosage: 2.25 G TWICE NIGHTLY PO
     Route: 048
     Dates: start: 20040301
  3. XYREM [Suspect]
     Indication: SOMNOLENCE
     Dosage: 2.25 G TWICE NIGHTLY PO
     Route: 048
     Dates: start: 20040301
  4. DEXTRA [Concomitant]
  5. TRAZODONE HCL [Concomitant]
  6. GABITRIL [Concomitant]
  7. CLARINEX [Concomitant]

REACTIONS (2)
  - NAUSEA [None]
  - VOMITING [None]
